FAERS Safety Report 8883035 (Version 1)
Quarter: 2012Q4

REPORT INFORMATION
  Report Type: 
  Country: US (occurrence: US)
  Receive Date: 20121102
  Receipt Date: 20121102
  Transmission Date: 20130627
  Serious: No
  Sender: FDA-Public Use
  Company Number: US-ABBOTT-12P-163-0944768-00

PATIENT
  Sex: Male

DRUGS (2)
  1. BIAXIN [Suspect]
     Indication: LYME DISEASE
     Dates: start: 201206
  2. MEPRON [Concomitant]
     Indication: LYME DISEASE
     Dates: start: 201206

REACTIONS (1)
  - Dysgeusia [Not Recovered/Not Resolved]
